FAERS Safety Report 23451119 (Version 1)
Quarter: 2024Q1

REPORT INFORMATION
  Report Type: Spontaneous
  Country: ES (occurrence: ES)
  Receive Date: 20240129
  Receipt Date: 20240129
  Transmission Date: 20240409
  Serious: Yes (Hospitalization)
  Sender: FDA-Public Use
  Company Number: None

PATIENT
  Age: 59 Year
  Sex: Female
  Weight: 44.7 kg

DRUGS (7)
  1. CISPLATIN [Suspect]
     Active Substance: CISPLATIN
     Indication: Angioimmunoblastic T-cell lymphoma
     Dosage: 123MG ON DAY+8, 1ST CYCLE
     Route: 042
     Dates: start: 20230915, end: 20230915
  2. CISPLATIN [Suspect]
     Active Substance: CISPLATIN
     Dosage: 105MG, 2ND CYCLE
     Route: 042
     Dates: start: 20231013, end: 20231013
  3. GEMCITABINE HYDROCHLORIDE [Suspect]
     Active Substance: GEMCITABINE HYDROCHLORIDE
     Indication: Angioimmunoblastic T-cell lymphoma
     Dosage: 1641 MG ON DAYS+1, 1ST CYCLE
     Route: 042
     Dates: start: 20230908, end: 20230908
  4. GEMCITABINE HYDROCHLORIDE [Suspect]
     Active Substance: GEMCITABINE HYDROCHLORIDE
     Dosage: 1641 MG ON DAYS+8, 1ST CYCLE
     Route: 042
     Dates: start: 20230915, end: 20230915
  5. GEMCITABINE HYDROCHLORIDE [Suspect]
     Active Substance: GEMCITABINE HYDROCHLORIDE
     Dosage: 1412MG, 2ND CYCLE
     Route: 042
     Dates: start: 20231013, end: 20231013
  6. DEXAMETHASONE [Concomitant]
     Active Substance: DEXAMETHASONE
     Indication: Angioimmunoblastic T-cell lymphoma
     Dosage: 40 MG, EVERY 24 HOURS, DAYS +1
     Route: 048
     Dates: start: 20230908, end: 20230908
  7. DEXAMETHASONE [Concomitant]
     Active Substance: DEXAMETHASONE
     Dosage: 40 MG, EVERY 24 HOURS, DAYS+4
     Route: 048
     Dates: start: 20230911, end: 20230911

REACTIONS (2)
  - Acute kidney injury [Recovered/Resolved]
  - Off label use [Unknown]

NARRATIVE: CASE EVENT DATE: 20230901
